FAERS Safety Report 6396485-4 (Version None)
Quarter: 2009Q4

REPORT INFORMATION
  Report Type: 
  Country: None (occurrence: None)
  Receive Date: 20091012
  Receipt Date: 20091006
  Transmission Date: 20100525
  Serious: Yes (Death, Other)
  Sender: FDA-Public Use
  Company Number: NL-BAYER-200934717GPV

PATIENT
  Age: 64 Year
  Sex: Male

DRUGS (11)
  1. AVELOX [Suspect]
     Indication: PNEUMONIA
     Dosage: TOTAL DAILY DOSE: 400 MG  UNIT DOSE: 400 MG
     Route: 042
     Dates: start: 20090802, end: 20090804
  2. MARCUMAR [Concomitant]
  3. NICOTINELL TT [Concomitant]
  4. VITAMIN B COMPLEX FORTE [Concomitant]
  5. NOVOLOG [Concomitant]
  6. MODALIM [Concomitant]
  7. DIAZEPAM [Concomitant]
  8. SPIRIVA [Concomitant]
     Route: 055
  9. LANTUS [Concomitant]
     Dosage: 100 IU/ML 3 ML PER 1 DF
  10. LORAZEPAM [Concomitant]
  11. PRAVASTATINENATRIUM PCH [Concomitant]

REACTIONS (5)
  - ALANINE AMINOTRANSFERASE INCREASED [None]
  - ASPARTATE AMINOTRANSFERASE INCREASED [None]
  - BLOOD LACTATE DEHYDROGENASE INCREASED [None]
  - DEATH [None]
  - HEPATIC FAILURE [None]
